FAERS Safety Report 9243171 (Version 1)
Quarter: 2013Q2

REPORT INFORMATION
  Report Type: Spontaneous
  Country: US (occurrence: US)
  Receive Date: 20130419
  Receipt Date: 20130419
  Transmission Date: 20140414
  Serious: Yes (Disabling)
  Sender: FDA-Public Use
  Company Number: US-US-EMD SERONO, INC.-7082401

PATIENT
  Age: 71 Year
  Sex: Female

DRUGS (2)
  1. REBIF [Suspect]
     Indication: MULTIPLE SCLEROSIS
     Route: 058
     Dates: start: 20110801, end: 20110810
  2. REBIF [Suspect]
     Route: 058
     Dates: start: 20110818, end: 201201

REACTIONS (2)
  - Corneal oedema [Unknown]
  - Corneal graft rejection [Not Recovered/Not Resolved]
